FAERS Safety Report 10522001 (Version 4)
Quarter: 2014Q4

REPORT INFORMATION
  Report Type: Spontaneous
  Country: IT (occurrence: IT)
  Receive Date: 20141016
  Receipt Date: 20141205
  Transmission Date: 20150528
  Serious: Yes (Other)
  Sender: FDA-Public Use
  Company Number: IT-ACTAVIS-2014-21887

PATIENT
  Age: 54 Year
  Sex: Female
  Weight: 58 kg

DRUGS (11)
  1. ERBITUX [Suspect]
     Active Substance: CETUXIMAB
     Dosage: 397 MG, CYCLICAL
     Route: 042
     Dates: start: 20140413, end: 20140917
  2. ZOPRANOL [Concomitant]
     Active Substance: ZOFENOPRIL
     Indication: HYPERTENSION
     Dosage: 30 MG, UNKNOWN
     Route: 048
  3. LEVOFOLINIC ACID [Concomitant]
     Active Substance: LEVOLEUCOVORIN
     Indication: PRODUCT USED FOR UNKNOWN INDICATION
     Dosage: 380 MG, UNKNOWN
     Route: 017
     Dates: start: 20140413, end: 20140917
  4. IRINOTECAN (UNKNOWN) [Suspect]
     Active Substance: IRINOTECAN
     Dosage: 228 MG, CYCLICAL
     Route: 042
     Dates: start: 20140413, end: 20140917
  5. 5 FLUOROURACIL                     /00098801/ [Suspect]
     Active Substance: FLUOROURACIL
     Dosage: 508 MG, CYCLICAL
     Route: 040
     Dates: start: 20140413, end: 20140917
  6. TERAZOSIN HYDROCHLORIDE. [Concomitant]
     Active Substance: TERAZOSIN HYDROCHLORIDE
     Indication: HYPERTENSION
     Dosage: 15 DROPS UNK
     Route: 048
  7. IRINOTECAN (UNKNOWN) [Suspect]
     Active Substance: IRINOTECAN
     Indication: ADENOCARCINOMA OF COLON
     Dosage: 285 MG, CYCLICAL
     Route: 042
     Dates: start: 20140413, end: 20140917
  8. 5 FLUOROURACIL                     /00098801/ [Suspect]
     Active Substance: FLUOROURACIL
     Dosage: 3816 MG, CYCLICAL
     Route: 041
     Dates: start: 20140413, end: 20140917
  9. ERBITUX [Suspect]
     Active Substance: CETUXIMAB
     Dosage: 300 MG, CYCLICAL
     Route: 042
     Dates: start: 20140413, end: 20140917
  10. ERBITUX [Suspect]
     Active Substance: CETUXIMAB
     Indication: ADENOCARCINOMA OF COLON
     Dosage: 630 MG, CYCLICAL
     Route: 042
     Dates: start: 20140413, end: 20140917
  11. 5 FLUOROURACIL                     /00098801/ [Suspect]
     Active Substance: FLUOROURACIL
     Indication: ADENOCARCINOMA OF COLON
     Dosage: 635 MG, CYCLICAL
     Route: 040
     Dates: start: 20140413, end: 20140917

REACTIONS (9)
  - Hypertrichosis [Not Recovered/Not Resolved]
  - Erythema [Not Recovered/Not Resolved]
  - Cardiac murmur [Not Recovered/Not Resolved]
  - Dermatitis acneiform [Not Recovered/Not Resolved]
  - Conjunctivitis [Not Recovered/Not Resolved]
  - Dyspnoea [Unknown]
  - Neutropenia [Recovering/Resolving]
  - Diarrhoea [Unknown]
  - Skin fissures [Not Recovered/Not Resolved]

NARRATIVE: CASE EVENT DATE: 20140415
